FAERS Safety Report 24334585 (Version 3)
Quarter: 2024Q4

REPORT INFORMATION
  Report Type: Report from Study
  Country: US (occurrence: US)
  Receive Date: 20240918
  Receipt Date: 20241125
  Transmission Date: 20250115
  Serious: No
  Sender: SUNOVION
  Company Number: US-SMPA-2024SPA001888AA

PATIENT

DRUGS (1)
  1. ORGOVYX [Suspect]
     Active Substance: RELUGOLIX
     Indication: Prostate cancer
     Dosage: 120 MG, QD
     Route: 048
     Dates: start: 20240209

REACTIONS (10)
  - Radiation injury [Unknown]
  - Dysphonia [Unknown]
  - Dysuria [Unknown]
  - Feeling abnormal [Unknown]
  - Balance disorder [Unknown]
  - Presyncope [Unknown]
  - Burning sensation [Unknown]
  - Dizziness [Unknown]
  - Asthenia [Unknown]
  - Incorrect dose administered [Unknown]
